FAERS Safety Report 9861634 (Version 1)
Quarter: 2014Q1

REPORT INFORMATION
  Report Type: Spontaneous
  Country: ES (occurrence: ES)
  Receive Date: 20140203
  Receipt Date: 20140203
  Transmission Date: 20141002
  Serious: Yes (Other)
  Sender: FDA-Public Use
  Company Number: ES-ROCHE-1341995

PATIENT
  Age: 54 Year
  Sex: Female

DRUGS (2)
  1. XOLAIR [Suspect]
     Indication: ASTHMA
     Route: 065
     Dates: start: 201311, end: 201311
  2. XOLAIR [Suspect]
     Indication: NASAL POLYPS

REACTIONS (5)
  - Hypothermia [Recovered/Resolved]
  - Rhinorrhoea [Recovered/Resolved]
  - Nasal disorder [Recovered/Resolved]
  - Malaise [Recovered/Resolved]
  - Off label use [Unknown]
